FAERS Safety Report 23346739 (Version 1)
Quarter: 2023Q4

REPORT INFORMATION
  Report Type: Spontaneous
  Country: US (occurrence: US)
  Receive Date: 20231228
  Receipt Date: 20231228
  Transmission Date: 20240110
  Serious: Yes (Other)
  Sender: FDA-Public Use
  Company Number: US-PFIZER INC-2019170063

PATIENT
  Age: 77 Year
  Sex: Female
  Weight: 90.72 kg

DRUGS (2)
  1. TIKOSYN [Suspect]
     Active Substance: DOFETILIDE
     Indication: Atrial fibrillation
     Dosage: 500 UG, 2X/DAY
     Dates: end: 20211024
  2. TIKOSYN [Suspect]
     Active Substance: DOFETILIDE
     Dosage: UNK

REACTIONS (5)
  - Ankle fracture [Unknown]
  - Fall [Unknown]
  - Ligament sprain [Unknown]
  - Back injury [Unknown]
  - Joint hyperextension [Unknown]

NARRATIVE: CASE EVENT DATE: 20230101
